FAERS Safety Report 25731728 (Version 1)
Quarter: 2025Q3

REPORT INFORMATION
  Report Type: Spontaneous
  Country: US (occurrence: US)
  Receive Date: 20250827
  Receipt Date: 20250827
  Transmission Date: 20251021
  Serious: No
  Sender: RVL PHARMACEUTICALS
  Company Number: US-RVL_Pharmaceuticals-USA-ALL1255202500077

PATIENT
  Age: 53 Year
  Sex: Female

DRUGS (2)
  1. UPNEEQ [Suspect]
     Active Substance: OXYMETAZOLINE HYDROCHLORIDE
     Indication: Eyelid ptosis
     Route: 047
     Dates: start: 202407, end: 202501
  2. DOXYCYCLINE [Concomitant]
     Active Substance: DOXYCYCLINE
     Indication: Erythema
     Dates: start: 20250307, end: 20250407

REACTIONS (7)
  - Hordeolum [Recovered/Resolved]
  - Dacryostenosis acquired [Recovered/Resolved]
  - Erythema [Not Recovered/Not Resolved]
  - Milia [Not Recovered/Not Resolved]
  - Multiple use of single-use product [Recovered/Resolved]
  - Drug ineffective [Recovered/Resolved]
  - Intentional product misuse [Recovered/Resolved]

NARRATIVE: CASE EVENT DATE: 20240701
